FAERS Safety Report 5326289-2 (Version None)
Quarter: 2007Q2

REPORT INFORMATION
  Report Type: 
  Country: None (occurrence: None)
  Receive Date: 20070514
  Receipt Date: 20070514
  Transmission Date: 20071010
  Serious: Yes (Other)
  Sender: FDA-Public Use
  Company Number: None

PATIENT
  Age: 10 Year
  Sex: Female
  Weight: 45.3597 kg

DRUGS (1)
  1. SINGULAIR [Suspect]
     Indication: ASTHMA
     Dosage: 1 CHEW TABLET DAILY AT BEDTIME PO
     Route: 048
     Dates: start: 20070507, end: 20070508

REACTIONS (5)
  - ABDOMINAL PAIN UPPER [None]
  - GASTRIC DISORDER [None]
  - ORAL INTAKE REDUCED [None]
  - STOMACH DISCOMFORT [None]
  - VOMITING [None]
